FAERS Safety Report 5745370-7 (Version None)
Quarter: 2008Q2

REPORT INFORMATION
  Report Type: 
  Country: None (occurrence: None)
  Receive Date: 20080521
  Receipt Date: 20080516
  Transmission Date: 20081010
  Serious: Yes (Hospitalization)
  Sender: FDA-Public Use
  Company Number: NZ-MERCK-0606NZL00026

PATIENT
  Age: 49 Year
  Sex: Female

DRUGS (9)
  1. ZETIA [Suspect]
     Indication: HYPERLIPIDAEMIA
     Route: 048
     Dates: start: 20060201, end: 20060601
  2. ALLOPURINOL [Concomitant]
     Route: 048
  3. CILAZAPRIL [Concomitant]
     Route: 048
  4. DILTIAZEM HYDROCHLORIDE [Concomitant]
     Route: 048
  5. FUROSEMIDE [Concomitant]
     Route: 048
  6. TRIMETHOPRIM [Concomitant]
     Route: 048
  7. WARFARIN [Concomitant]
     Route: 065
  8. PROGESTERONE [Concomitant]
     Indication: MENORRHAGIA
     Route: 065
     Dates: end: 20060101
  9. METFORMIN [Concomitant]
     Route: 065

REACTIONS (3)
  - ACUTE HEPATIC FAILURE [None]
  - HEPATIC CIRRHOSIS [None]
  - HEPATITIS [None]
